FAERS Safety Report 12321633 (Version 2)
Quarter: 2016Q2

REPORT INFORMATION
  Report Type: Spontaneous
  Country: JP (occurrence: JP)
  Receive Date: 20160502
  Receipt Date: 20160518
  Transmission Date: 20160815
  Serious: Yes (Hospitalization, Other)
  Sender: FDA-Public Use
  Company Number: JP-ELI_LILLY_AND_COMPANY-JP201604007315

PATIENT
  Age: 73 Year
  Sex: Male
  Weight: 54 kg

DRUGS (1)
  1. GEMZAR [Suspect]
     Active Substance: GEMCITABINE HYDROCHLORIDE
     Indication: BILE DUCT ADENOCARCINOMA
     Dosage: UNK
     Route: 042

REACTIONS (5)
  - Pain [Recovering/Resolving]
  - Malaise [Unknown]
  - Decreased appetite [Unknown]
  - Febrile neutropenia [Unknown]
  - Pyrexia [Unknown]
